FAERS Safety Report 19904310 (Version 1)
Quarter: 2021Q4

REPORT INFORMATION
  Report Type: Spontaneous
  Country: NL (occurrence: NL)
  Receive Date: 20211001
  Receipt Date: 20211001
  Transmission Date: 20220303
  Serious: Yes (Other)
  Sender: FDA-Public Use
  Company Number: None

PATIENT
  Age: 35 Year
  Sex: Female
  Weight: 57 kg

DRUGS (2)
  1. HYDROCORTISONE ACETATE [Suspect]
     Active Substance: HYDROCORTISONE ACETATE
     Indication: Eczema
     Dosage: OVER THE PAST 30 YEARS, THE USE AND STRENGTH OF HORMONE OINTMENT HAS VARIED. DEPENDING ON THE SEVERI
     Route: 065
     Dates: start: 1982, end: 20171001
  2. TACROLIMUS [Suspect]
     Active Substance: TACROLIMUS
     Indication: Eczema
     Dosage: 1 DOSAGE FORMS DAILY; 1X DAILY FOR THE FACE
     Route: 065
     Dates: start: 2018, end: 2018

REACTIONS (4)
  - Steroid withdrawal syndrome [Recovering/Resolving]
  - Skin warm [Recovering/Resolving]
  - Skin exfoliation [Recovering/Resolving]
  - Erythema [Recovering/Resolving]

NARRATIVE: CASE EVENT DATE: 20180501
